FAERS Safety Report 8562881 (Version 2)
Quarter: 2013Q1

REPORT INFORMATION
  Report Type: Spontaneous
  Country: US (occurrence: US)
  Receive Date: 20120515
  Receipt Date: 20130206
  Transmission Date: 20140127
  Serious: Yes (Hospitalization)
  Sender: FDA-Public Use
  Company Number: US-ASTRAZENECA-2012SE28077

PATIENT
  Age: 47 Year
  Sex: Female

DRUGS (7)
  1. NEXIUM [Suspect]
     Dosage: TAKING 2 CAPSULES INSTEAD OF ONE
     Route: 048
  2. ANTICOAGULANT [Concomitant]
  3. PAIN MEDICATION [Concomitant]
  4. OXYCODONE [Concomitant]
  5. IRON [Concomitant]
  6. NAPROXEN [Concomitant]
  7. DIAZEPAM [Concomitant]
     Dosage: PRN

REACTIONS (6)
  - Gastritis [Unknown]
  - Ankle fracture [Unknown]
  - Hiatus hernia [Unknown]
  - Gastrointestinal fungal infection [Unknown]
  - Malaise [Unknown]
  - Intentional drug misuse [Unknown]
